FAERS Safety Report 16164160 (Version 1)
Quarter: 2019Q2

REPORT INFORMATION
  Report Type: Report from Study
  Country: US (occurrence: US)
  Receive Date: 20190405
  Receipt Date: 20190405
  Transmission Date: 20190711
  Serious: Yes (Hospitalization, Other)
  Sender: FDA-Public Use
  Company Number: US-JNJFOC-20181118554

PATIENT
  Age: 91 Year
  Sex: Female

DRUGS (5)
  1. IMBRUVICA [Suspect]
     Active Substance: IBRUTINIB
     Indication: NON-HODGKIN^S LYMPHOMA
     Route: 048
     Dates: start: 20190319
  2. IMBRUVICA [Suspect]
     Active Substance: IBRUTINIB
     Indication: NON-HODGKIN^S LYMPHOMA
     Dosage: 280 MG, QOD
     Route: 048
     Dates: start: 20180816, end: 20190102
  3. IMBRUVICA [Suspect]
     Active Substance: IBRUTINIB
     Indication: NON-HODGKIN^S LYMPHOMA
     Dosage: 280 MG, QD
     Route: 048
     Dates: start: 20190103
  4. IMBRUVICA [Suspect]
     Active Substance: IBRUTINIB
     Indication: NON-HODGKIN^S LYMPHOMA
     Dosage: 420 MG, QD
     Route: 048
     Dates: start: 20180913
  5. IMBRUVICA [Suspect]
     Active Substance: IBRUTINIB
     Indication: NON-HODGKIN^S LYMPHOMA
     Route: 048
     Dates: start: 20181212

REACTIONS (17)
  - Fall [Recovering/Resolving]
  - Haemoglobin decreased [Not Recovered/Not Resolved]
  - Lumbar vertebral fracture [Recovering/Resolving]
  - Hip fracture [Unknown]
  - Pneumonia [Unknown]
  - Legionella infection [Unknown]
  - Depression [Recovering/Resolving]
  - Pain [Unknown]
  - Skin laceration [Unknown]
  - Haemorrhage [Unknown]
  - Weight decreased [Recovering/Resolving]
  - Skin atrophy [Unknown]
  - Decreased appetite [Unknown]
  - Syncope [Recovering/Resolving]
  - Gastric disorder [Unknown]
  - Dehydration [Unknown]
  - Nasopharyngitis [Unknown]

NARRATIVE: CASE EVENT DATE: 20181206
